FAERS Safety Report 20299927 (Version 2)
Quarter: 2022Q3

REPORT INFORMATION
  Report Type: Report from Study
  Country: MX (occurrence: MX)
  Receive Date: 20220105
  Receipt Date: 20220706
  Transmission Date: 20221027
  Serious: Yes (Other)
  Sender: FDA-Public Use
  Company Number: MX-NOVARTISPH-NVSC2022MX001005

PATIENT
  Sex: Male
  Weight: 55 kg

DRUGS (6)
  1. ENTRESTO [Suspect]
     Active Substance: SACUBITRIL\VALSARTAN
     Indication: Cardiac failure
     Dosage: 1 DOSAGE FORM, BID (50 MG)
     Route: 048
  2. ENTRESTO [Suspect]
     Active Substance: SACUBITRIL\VALSARTAN
     Indication: Cardiac disorder
     Dosage: 1 DOSAGE FORM, BID (100 MG)
     Route: 048
  3. ENTRESTO [Suspect]
     Active Substance: SACUBITRIL\VALSARTAN
     Dosage: 1 DOSAGE FORM, BID, (100 MG)
     Route: 048
  4. ASPIRIN [Concomitant]
     Active Substance: ASPIRIN
     Indication: Cardiac disorder
     Dosage: 1 DOSAGE FORM, QD
     Route: 048
     Dates: start: 20201215
  5. MICCIL [Concomitant]
     Indication: Cardiac disorder
     Dosage: 1 DOSAGE FORM, BID
     Route: 048
     Dates: start: 20201215
  6. SIG [Concomitant]
     Indication: Cardiac disorder
     Dosage: 0.5 DOSAGE FORM, BID (EVERY 12 HOURS)
     Route: 048
     Dates: start: 20201215

REACTIONS (5)
  - Pulmonary fibrosis [Unknown]
  - Dyspnoea [Unknown]
  - Blood uric acid abnormal [Unknown]
  - Inappropriate schedule of product administration [Not Recovered/Not Resolved]
  - Fatigue [Unknown]
